FAERS Safety Report 5339772-0 (Version None)
Quarter: 2007Q2

REPORT INFORMATION
  Report Type: 
  Country: None (occurrence: None)
  Receive Date: 20070404
  Receipt Date: 20060822
  Transmission Date: 20071010
  Serious: Yes (Other)
  Sender: FDA-Public Use
  Company Number: 2006102683

PATIENT
  Age: 20 Year
  Sex: Male

DRUGS (3)
  1. GEODON [Suspect]
     Indication: BIPOLAR DISORDER
     Dosage: 120 MG (60 MG,2 IN 1 D),ORAL
     Route: 048
     Dates: start: 20060101
  2. DEPAKOTE [Concomitant]
  3. ALL OTHER THERAPEUTIC PRODUCTS (ALL OTHER THERAPEUTIC PRODUCTS) [Concomitant]

REACTIONS (1)
  - DYSTONIA [None]
